FAERS Safety Report 9229059 (Version 1)
Quarter: 2013Q2

REPORT INFORMATION
  Report Type: Report from Study
  Country: AU (occurrence: AU)
  Receive Date: 20130412
  Receipt Date: 20130412
  Transmission Date: 20140414
  Serious: Yes (Other)
  Sender: FDA-Public Use
  Company Number: AU-VERTEX PHARMACEUTICALS INC.-2013-004881

PATIENT
  Age: 39 Year
  Sex: Male
  Weight: 93 kg

DRUGS (3)
  1. VX-950 (TELAPREVIR) [Suspect]
     Indication: HEPATITIS C
     Dosage: TABLET
     Route: 048
     Dates: start: 20130116
  2. PEGINTERFERON ALFA [Suspect]
     Indication: HEPATITIS C
     Dosage: DOSAGE FORM: UNKNOWN
     Route: 065
  3. RIBAVIRIN [Suspect]
     Indication: HEPATITIS C
     Dosage: DOSAGE FORM: UNKNOWN
     Route: 065

REACTIONS (12)
  - Blood urea increased [Unknown]
  - Rash [Recovered/Resolved]
  - Haemoglobin decreased [Unknown]
  - Blood bilirubin increased [Unknown]
  - Platelet count increased [Unknown]
  - White blood cell count decreased [Unknown]
  - Neutrophil count decreased [Unknown]
  - Alanine aminotransferase decreased [Unknown]
  - Aspartate aminotransferase decreased [Unknown]
  - Blood alkaline phosphatase increased [Unknown]
  - Gamma-glutamyltransferase increased [Unknown]
  - Drug ineffective [Unknown]
